FAERS Safety Report 16382099 (Version 2)
Quarter: 2019Q2

REPORT INFORMATION
  Report Type: Spontaneous
  Country: MX (occurrence: MX)
  Receive Date: 20190603
  Receipt Date: 20190604
  Transmission Date: 20190711
  Serious: Yes (Death)
  Sender: FDA-Public Use
  Company Number: MX-BAYER-2019-106974

PATIENT
  Age: 56 Year
  Sex: Female
  Weight: 65 kg

DRUGS (2)
  1. ULTRAVIST [Suspect]
     Active Substance: IOPROMIDE
     Indication: SCAN WITH CONTRAST
     Dosage: 300 MG/ML, ONCE
     Dates: start: 20190530, end: 20190530
  2. ULTRAVIST [Suspect]
     Active Substance: IOPROMIDE
     Indication: SCAN WITH CONTRAST
     Dosage: 30 ML

REACTIONS (2)
  - Death [Fatal]
  - Cardiac arrest [Fatal]

NARRATIVE: CASE EVENT DATE: 20190530
